FAERS Safety Report 4752718-9 (Version None)
Quarter: 2005Q3

REPORT INFORMATION
  Report Type: 
  Country: None (occurrence: None)
  Receive Date: 20050823
  Receipt Date: 20050514
  Transmission Date: 20060218
  Serious: Yes (Other)
  Sender: FDA-Public Use
  Company Number: 2005075604

PATIENT
  Age: 71 Year
  Sex: Female
  Weight: 77.1115 kg

DRUGS (9)
  1. NORVASC [Suspect]
     Indication: BLOOD PRESSURE
     Dosage: 5 MEQ (5 MEQ, EVERY DAY), ORAL
     Route: 048
     Dates: start: 20050101, end: 20050101
  2. ACTOS [Suspect]
     Indication: DIABETES MELLITUS
     Dosage: ORAL
     Route: 048
     Dates: start: 20050101, end: 20050101
  3. GLUCOTROL XL [Concomitant]
  4. METFORMIN HCL [Concomitant]
  5. GLYBURIDE [Concomitant]
  6. ATENOLOL [Concomitant]
  7. BENICAR [Concomitant]
  8. PRILOSEC [Concomitant]
  9. LESCOL [Concomitant]

REACTIONS (2)
  - COUGH [None]
  - SWELLING [None]
